FAERS Safety Report 7439406-5 (Version None)
Quarter: 2011Q2

REPORT INFORMATION
  Report Type: 
  Country: None (occurrence: None)
  Receive Date: 20110421
  Receipt Date: 20110421
  Transmission Date: 20111010
  Serious: Yes (Other)
  Sender: FDA-Public Use
  Company Number: None

PATIENT
  Age: 60 Year
  Sex: Male
  Weight: 99.7913 kg

DRUGS (2)
  1. FLOMAX [Suspect]
     Indication: URINARY RETENTION
     Dosage: 4MG DAILY OPHTHALMIC
     Route: 047
     Dates: start: 20080128, end: 20080128
  2. FLOMAX [Suspect]
     Indication: URINARY RETENTION
     Dosage: 4MG DAILY OPHTHALMIC
     Route: 047
     Dates: start: 20080108, end: 20080128

REACTIONS (1)
  - DIZZINESS [None]
